FAERS Safety Report 17071453 (Version 1)
Quarter: 2019Q4

REPORT INFORMATION
  Report Type: Spontaneous
  Country: US (occurrence: US)
  Receive Date: 20191125
  Receipt Date: 20191125
  Transmission Date: 20200122
  Serious: No
  Sender: FDA-Public Use
  Company Number: US-ROCHE-2300314

PATIENT
  Age: 14 Year
  Sex: Female
  Weight: 52.21 kg

DRUGS (3)
  1. TAMIFLU [Suspect]
     Active Substance: OSELTAMIVIR PHOSPHATE
     Indication: INFLUENZA
     Dosage: 75 MG DOSAGE 1 PILL FOR 5 DAYS ;ONGOING: UNKNOWN
     Route: 048
     Dates: start: 20190402
  2. ADVIL [IBUPROFEN] [Concomitant]
     Active Substance: IBUPROFEN
     Dosage: AS NEEDED ;ONGOING: UNKNOWN
     Route: 065
  3. TYLENOL [Concomitant]
     Active Substance: ACETAMINOPHEN
     Dosage: AS NEEDED ;ONGOING: UNKNOWN
     Route: 065

REACTIONS (4)
  - Pyrexia [Recovered/Resolved]
  - Dizziness [Not Recovered/Not Resolved]
  - Abdominal discomfort [Not Recovered/Not Resolved]
  - Nausea [Not Recovered/Not Resolved]

NARRATIVE: CASE EVENT DATE: 20190403
